FAERS Safety Report 4480531-9 (Version None)
Quarter: 2004Q4

REPORT INFORMATION
  Report Type: 
  Country: None (occurrence: None)
  Receive Date: 20041019
  Receipt Date: 20041006
  Transmission Date: 20050328
  Serious: Yes (Disabling)
  Sender: FDA-Public Use
  Company Number: 2003118702

PATIENT
  Age: 88 Year
  Sex: Female

DRUGS (2)
  1. ZITHROMAX [Suspect]
     Indication: SINUSITIS
     Dosage: (2 IN 1 D), ORAL
     Route: 048
     Dates: start: 20000207, end: 20000209
  2. CODEINE (CODEINE) [Concomitant]

REACTIONS (7)
  - AGEUSIA [None]
  - CARPAL TUNNEL SYNDROME [None]
  - DEPRESSION [None]
  - DRY MOUTH [None]
  - HYPOSMIA [None]
  - NAUSEA [None]
  - SLEEP DISORDER [None]
